FAERS Safety Report 5232410-7 (Version None)
Quarter: 2007Q1

REPORT INFORMATION
  Report Type: 
  Country: None (occurrence: None)
  Receive Date: 20070207
  Receipt Date: 20070205
  Transmission Date: 20070707
  Serious: Yes (Other)
  Sender: FDA-Public Use
  Company Number: US-BRISTOL-MYERS SQUIBB COMPANY-12933982

PATIENT
  Age: 67 Year
  Sex: Female

DRUGS (6)
  1. ESTRACE [Suspect]
     Indication: HORMONE REPLACEMENT THERAPY
     Dates: start: 19971103, end: 20010206
  2. ESTRADIOL [Suspect]
     Indication: HORMONE REPLACEMENT THERAPY
     Dates: start: 20000103
  3. CLIMARA [Suspect]
     Indication: HORMONE REPLACEMENT THERAPY
     Route: 062
     Dates: start: 19971103
  4. DEPO-PROVERA [Suspect]
     Indication: HORMONE REPLACEMENT THERAPY
     Route: 030
     Dates: start: 19920701
  5. MEDROXYPROGESTERONE [Suspect]
     Indication: HORMONE REPLACEMENT THERAPY
     Dosage: DOSE VARIED - 2.5MG; 10MG
     Dates: start: 19930614, end: 19940617
  6. CONJUGATED ESTROGENS [Suspect]
     Indication: HORMONE REPLACEMENT THERAPY
     Dates: start: 19910807, end: 20020516

REACTIONS (1)
  - BREAST CANCER [None]
